FAERS Safety Report 17060696 (Version 1)
Quarter: 2019Q4

REPORT INFORMATION
  Report Type: Spontaneous
  Country: FR (occurrence: FR)
  Receive Date: 20191121
  Receipt Date: 20191121
  Transmission Date: 20200122
  Serious: Yes (Other)
  Sender: FDA-Public Use
  Company Number: FR-MYLANLABS-2019M1111546

PATIENT
  Age: 25 Year
  Sex: Female

DRUGS (13)
  1. PARACETAMOL [Concomitant]
     Active Substance: ACETAMINOPHEN
     Indication: PRODUCT USED FOR UNKNOWN INDICATION
     Dosage: 4 GRAM, QD, 1 G 4X/DAY (QID)
  2. DIFFU-K [Suspect]
     Active Substance: POTASSIUM CHLORIDE
     Dosage: 3 DF, QD, 1 DF, 3X/DAY (TID)
     Dates: start: 201505, end: 20150723
  3. SPECIAFOLDINE [Suspect]
     Active Substance: FOLIC ACID
     Indication: PRODUCT USED FOR UNKNOWN INDICATION
     Dosage: 5 MILLIGRAM, QD
  4. CIPROFLOXACIN. [Suspect]
     Active Substance: CIPROFLOXACIN
     Indication: CAMPYLOBACTER TEST POSITIVE
     Dosage: UNK
     Dates: start: 20150403, end: 20150408
  5. REMICADE [Suspect]
     Active Substance: INFLIXIMAB
     Indication: PRODUCT USED FOR UNKNOWN INDICATION
     Dosage: 5 MILLIGRAM/KILOGRAM, 4 CYCLES RECEIVED
     Dates: start: 20150401
  6. TARDYFERON [Suspect]
     Active Substance: FERROUS SULFATE
     Indication: IRON DEFICIENCY
     Dosage: 80 MILLIGRAM, QD
     Dates: start: 20150516, end: 20150723
  7. DOMPERIDONE [Suspect]
     Active Substance: DOMPERIDONE
     Indication: PRODUCT USED FOR UNKNOWN INDICATION
     Dosage: 10 MILLIGRAM, QD
     Dates: start: 2015, end: 20150723
  8. DIFFU-K [Suspect]
     Active Substance: POTASSIUM CHLORIDE
     Indication: PRODUCT USED FOR UNKNOWN INDICATION
     Dosage: 6 DF, QD (2 DF, 3X/DAY (TID)
     Dates: end: 201505
  9. CALCIDOSE                          /07357001/ [Suspect]
     Active Substance: CALCIUM CARBONATE
     Indication: PRODUCT USED FOR UNKNOWN INDICATION
     Dosage: 500 MILLIGRAM, QD
  10. METHYLPREDNISOLONE. [Suspect]
     Active Substance: METHYLPREDNISOLONE
     Indication: PRODUCT USED FOR UNKNOWN INDICATION
     Dosage: 0.8 MILLIGRAM/KILOGRAM
     Route: 042
     Dates: start: 20150327, end: 20150331
  11. ROWASA [Suspect]
     Active Substance: MESALAMINE
     Indication: PRODUCT USED FOR UNKNOWN INDICATION
     Dosage: 2 GRAM, QD
     Dates: end: 20150416
  12. SPASFON                            /00934601/ [Suspect]
     Active Substance: PHLOROGLUCINOL
     Indication: PRODUCT USED FOR UNKNOWN INDICATION
     Dosage: ON DEMAND
  13. LOVENOX [Suspect]
     Active Substance: ENOXAPARIN SODIUM
     Indication: PRODUCT USED FOR UNKNOWN INDICATION
     Dosage: 0.4 MILLILITER, QD
     Dates: start: 20150329, end: 20150416

REACTIONS (5)
  - Premature delivery [Recovered/Resolved]
  - Rhinitis allergic [Unknown]
  - Maternal exposure during pregnancy [Recovered/Resolved]
  - Abscess [Unknown]
  - Twin pregnancy [Recovered/Resolved]

NARRATIVE: CASE EVENT DATE: 2015
